FAERS Safety Report 14659360 (Version 1)
Quarter: 2018Q1

REPORT INFORMATION
  Report Type: Spontaneous
  Country: GB (occurrence: GB)
  Receive Date: 20180320
  Receipt Date: 20180320
  Transmission Date: 20180509
  Serious: Yes (Hospitalization)
  Sender: FDA-Public Use
  Company Number: GB-TEVA-2018-GB-871839

PATIENT
  Age: 54 Year
  Sex: Female
  Weight: 85.6 kg

DRUGS (17)
  1. MONTELUKAST [Concomitant]
     Active Substance: MONTELUKAST SODIUM
     Route: 065
  2. DAPAGLIFLOZIN. [Concomitant]
     Active Substance: DAPAGLIFLOZIN
     Route: 065
  3. ATORVASTATIN [Concomitant]
     Active Substance: ATORVASTATIN
     Route: 065
  4. PREDNISOLONE. [Suspect]
     Active Substance: PREDNISOLONE
     Indication: CHRONIC OBSTRUCTIVE PULMONARY DISEASE
     Dosage: REDUCING COURSE, 50MG FOR 5 DAYS, THEN 30MG FOR 5 DAYS AND THEN REDUCING BY 5MG EVERY 5 DAYS UNTIL 0
     Route: 048
  5. GLICLAZIDE [Concomitant]
     Active Substance: GLICLAZIDE
     Route: 065
  6. UMECLIDINIUM [Concomitant]
     Active Substance: UMECLIDINIUM BROMIDE
     Route: 065
  7. FLUTICASONE. [Concomitant]
     Active Substance: FLUTICASONE
     Route: 065
  8. FULTIUM-D3 [Concomitant]
     Active Substance: CHOLECALCIFEROL
     Route: 065
  9. METFORMIN HYDROCHLORIDE. [Concomitant]
     Active Substance: METFORMIN HYDROCHLORIDE
     Route: 065
  10. FERROUS FUMARATE [Concomitant]
     Active Substance: FERROUS FUMARATE
     Route: 065
  11. VILANTEROL [Concomitant]
     Active Substance: VILANTEROL TRIFENATATE
     Route: 065
  12. ZOPICLONE [Concomitant]
     Active Substance: ZOPICLONE
     Route: 065
  13. SERTRALINE [Concomitant]
     Active Substance: SERTRALINE HYDROCHLORIDE
     Route: 065
  14. PARACETAMOL [Concomitant]
     Active Substance: ACETAMINOPHEN
     Route: 065
  15. LANSOPRAZOLE. [Concomitant]
     Active Substance: LANSOPRAZOLE
     Route: 065
  16. LEVOTHYROXINE SODIUM. [Concomitant]
     Active Substance: LEVOTHYROXINE SODIUM
     Route: 065
  17. SITAGLIPTIN [Concomitant]
     Active Substance: SITAGLIPTIN
     Route: 065

REACTIONS (4)
  - Dyspnoea [Unknown]
  - Abdominal pain [Unknown]
  - Pancreatitis acute [Recovering/Resolving]
  - Cough [Unknown]
